FAERS Safety Report 6244031-8 (Version None)
Quarter: 2009Q2

REPORT INFORMATION
  Report Type: 
  Country: None (occurrence: None)
  Receive Date: 20090625
  Receipt Date: 20080627
  Transmission Date: 20091009
  Serious: Yes (Hospitalization)
  Sender: FDA-Public Use
  Company Number: US-ASTRAZENECA-2007UW10956

PATIENT
  Age: 13541 Day
  Sex: Male
  Weight: 93.9 kg

DRUGS (34)
  1. SEROQUEL [Suspect]
     Indication: SCHIZOPHRENIA
     Route: 048
     Dates: start: 19940101, end: 20071101
  2. SEROQUEL [Suspect]
     Indication: DEPRESSION
     Route: 048
     Dates: start: 19940101, end: 20071101
  3. SEROQUEL [Suspect]
     Indication: ANXIETY
     Route: 048
     Dates: start: 19940101, end: 20071101
  4. SEROQUEL [Suspect]
     Indication: PARANOID PERSONALITY DISORDER
     Route: 048
     Dates: start: 19940101, end: 20071101
  5. SEROQUEL [Suspect]
     Dosage: 200 MG TO 250 MG
     Route: 048
     Dates: start: 19970101
  6. SEROQUEL [Suspect]
     Dosage: 200 MG TO 250 MG
     Route: 048
     Dates: start: 19970101
  7. SEROQUEL [Suspect]
     Dosage: 200 MG TO 250 MG
     Route: 048
     Dates: start: 19970101
  8. SEROQUEL [Suspect]
     Dosage: 200 MG TO 250 MG
     Route: 048
     Dates: start: 19970101
  9. SEROQUEL [Suspect]
     Dosage: 200 MG TO 650 MG
     Route: 048
     Dates: start: 19990924
  10. SEROQUEL [Suspect]
     Dosage: 200 MG TO 650 MG
     Route: 048
     Dates: start: 19990924
  11. SEROQUEL [Suspect]
     Dosage: 200 MG TO 650 MG
     Route: 048
     Dates: start: 19990924
  12. SEROQUEL [Suspect]
     Dosage: 200 MG TO 650 MG
     Route: 048
     Dates: start: 19990924
  13. ZYPREXA [Concomitant]
     Dates: start: 20080101, end: 20080201
  14. ZYPREXA [Concomitant]
     Dates: start: 20050611
  15. ABILIFY [Concomitant]
     Dates: start: 20060601, end: 20060801
  16. GEODON [Concomitant]
     Dates: start: 19920601, end: 19970801
  17. HALDOL [Concomitant]
  18. NAVANE [Concomitant]
     Dates: start: 19910101, end: 19920101
  19. THORAZINE [Concomitant]
     Dates: start: 19920101
  20. TRAZODONE HCL [Concomitant]
     Dosage: 75 MG TO 300 MG
     Dates: start: 19901003
  21. LITHOBID [Concomitant]
     Dosage: 600 MG TO 1200 MG
     Dates: start: 19920414
  22. CLOZARIL [Concomitant]
     Dosage: 100 MG TO 350 MG
     Dates: start: 19950223
  23. NEURONTIN [Concomitant]
     Dosage: 400 MG TO 1600 MG
     Dates: start: 19990924
  24. DEPAKOTE [Concomitant]
     Dates: start: 19990924, end: 19991029
  25. ATIVAN [Concomitant]
     Indication: AGITATION
     Dosage: 1-2 MG 6-8 HRS PM
     Dates: start: 19990924, end: 20040706
  26. ATIVAN [Concomitant]
     Dosage: 1 MG TO 3 MG
     Dates: start: 20050611
  27. ZOCOR [Concomitant]
     Route: 048
     Dates: start: 20010104
  28. REMERON [Concomitant]
     Dates: start: 20010104
  29. KLONOPIN [Concomitant]
     Dosage: 0.5 MG TO 4.5 MG
     Dates: start: 20010104
  30. ZOLOFT [Concomitant]
     Dates: start: 20040306
  31. SINEMET [Concomitant]
     Dosage: 10-100 MG DAILY TO 25-100 MG 2 TABS DAILY
     Dates: start: 20050611
  32. CYMBALTA [Concomitant]
     Dosage: 50 MG TO 60 MG
     Dates: start: 20050611
  33. DEMEROL [Concomitant]
     Route: 042
     Dates: start: 20061010
  34. VERSED [Concomitant]
     Route: 042
     Dates: start: 20061010

REACTIONS (10)
  - BACK DISORDER [None]
  - DIABETES MELLITUS [None]
  - FACET JOINT SYNDROME [None]
  - HYPERGLYCAEMIA [None]
  - ILEUS [None]
  - INTERVERTEBRAL DISC DEGENERATION [None]
  - PANCREATITIS [None]
  - PANCREATITIS ACUTE [None]
  - PANCREATITIS RELAPSING [None]
  - SPINAL COLUMN STENOSIS [None]
